FAERS Safety Report 6212986 (Version 4)
Quarter: 2012Q4

REPORT INFORMATION
  Report Type: 
  Country: US (occurrence: US)
  Receive Date: 20070111
  Receipt Date: 20120831
  Transmission Date: 20130627
  Serious: Yes (Congenital Anomaly, Other)
  Sender: FDA-Public Use
  Company Number: US-ELI_LILLY_AND_COMPANY-US200602001021

PATIENT
  Age: 0 None
  Sex: Female
  Weight: 1.59 kg

DRUGS (4)
  1. PROZAC [Suspect]
     Indication: OBSESSIVE-COMPULSIVE DISORDER
     Dosage: UNK
     Route: 064
  2. PROZAC [Suspect]
     Indication: OBSESSIVE-COMPULSIVE DISORDER
     Dosage: UNK
     Route: 064
  3. PRENATAL VITAMINS                  /01549301/ [Concomitant]
     Route: 064
  4. PRENATAL VITAMINS                  /01549301/ [Concomitant]
     Route: 064

REACTIONS (11)
  - Coarctation of the aorta [Recovered/Resolved]
  - Ventricular septal defect [Not Recovered/Not Resolved]
  - Foetal distress syndrome [Unknown]
  - Respiratory arrest [Recovering/Resolving]
  - Aorta hypoplasia [Not Recovered/Not Resolved]
  - Small for dates baby [Unknown]
  - Placental insufficiency [Not Recovered/Not Resolved]
  - Heart disease congenital [Unknown]
  - Premature baby [Recovering/Resolving]
  - Foetal exposure during pregnancy [Unknown]
  - Dacryostenosis acquired [Unknown]
